FAERS Safety Report 8287157-X (Version None)
Quarter: 2012Q2

REPORT INFORMATION
  Report Type: 
  Country: None (occurrence: None)
  Receive Date: 20120416
  Receipt Date: 20120402
  Transmission Date: 20120825
  Serious: Yes (Hospitalization)
  Sender: FDA-Public Use
  Company Number: JP-ROCHE-656829

PATIENT
  Sex: Female
  Weight: 53 kg

DRUGS (15)
  1. ACTEMRA [Suspect]
     Route: 041
     Dates: start: 20090220, end: 20090806
  2. FAMOTIDINE [Concomitant]
  3. ACTEMRA [Suspect]
     Route: 041
     Dates: start: 20080904, end: 20080904
  4. MOBIC [Concomitant]
     Route: 048
  5. ACTEMRA [Suspect]
     Route: 041
     Dates: start: 20080731, end: 20080731
  6. ACTEMRA [Suspect]
     Route: 041
     Dates: start: 20081009, end: 20081009
  7. ACTEMRA [Suspect]
     Route: 041
     Dates: start: 20081218, end: 20081218
  8. ACTEMRA [Suspect]
     Route: 041
  9. PREDNISOLONE [Concomitant]
     Route: 048
  10. ACTEMRA [Suspect]
     Route: 041
     Dates: start: 20081113, end: 20081113
  11. ACTEMRA [Suspect]
     Indication: RHEUMATOID ARTHRITIS
     Route: 041
     Dates: start: 20050824, end: 20080701
  12. ACTEMRA [Suspect]
     Route: 041
     Dates: start: 20090122, end: 20090122
  13. FAMOTIDINE [Concomitant]
     Route: 048
  14. MUCOSTA [Concomitant]
     Dosage: FORM: ORAL FORMULATION (NOT OTHERWISE SPECIFIED)
     Route: 048
  15. REBAMIPIDE [Concomitant]

REACTIONS (2)
  - PLEURISY [None]
  - PNEUMONIA [None]
